FAERS Safety Report 16479569 (Version 1)
Quarter: 2019Q2

REPORT INFORMATION
  Report Type: Report from Study
  Country: US (occurrence: US)
  Receive Date: 20190626
  Receipt Date: 20190626
  Transmission Date: 20190711
  Serious: Yes (Hospitalization)
  Sender: FDA-Public Use
  Company Number: US-BIOGEN-2019BI00754569

PATIENT
  Sex: Male

DRUGS (1)
  1. TECFIDERA [Suspect]
     Active Substance: DIMETHYL FUMARATE
     Indication: MULTIPLE SCLEROSIS
     Dosage: MAINTENANCE DOSE
     Route: 048

REACTIONS (9)
  - Diarrhoea [Unknown]
  - Infection [Unknown]
  - Pain [Unknown]
  - Pyrexia [Unknown]
  - Tremor [Unknown]
  - Vomiting [Unknown]
  - Fatigue [Unknown]
  - Blood potassium decreased [Unknown]
  - Fall [Recovered/Resolved]
